FAERS Safety Report 14097636 (Version 3)
Quarter: 2018Q1

REPORT INFORMATION
  Report Type: Report from Study
  Country: US (occurrence: US)
  Receive Date: 20171017
  Receipt Date: 20180309
  Transmission Date: 20180508
  Serious: No
  Sender: FDA-Public Use
  Company Number: US-ASTRAZENECA-2017SF04787

PATIENT
  Age: 804 Month
  Sex: Male
  Weight: 61.7 kg

DRUGS (11)
  1. TUDORZA PRESSAIR [Suspect]
     Active Substance: ACLIDINIUM BROMIDE
     Indication: CHRONIC OBSTRUCTIVE PULMONARY DISEASE
     Dosage: 400 MCG, 1 PUFF TWICE PER DAY
     Route: 055
  2. SYMBICORT [Suspect]
     Active Substance: BUDESONIDE\FORMOTEROL FUMARATE DIHYDRATE
     Dosage: UNKNOWN UNKNOWN
     Route: 055
  3. BRIO ELLIPITICA [Concomitant]
     Indication: EMPHYSEMA
     Dosage: DAILY
     Route: 055
  4. DUTASTERIDE. [Concomitant]
     Active Substance: DUTASTERIDE
     Indication: BLADDER DISORDER
     Route: 065
  5. PROBIOTIC [Concomitant]
     Active Substance: PROBIOTICS NOS
     Route: 065
  6. TUDORZA PRESSAIR [Suspect]
     Active Substance: ACLIDINIUM BROMIDE
     Indication: EMPHYSEMA
     Dosage: 400 MCG, 1 PUFF TWICE PER DAY
     Route: 055
  7. BRIO ELLIPITICA [Concomitant]
     Indication: CHRONIC OBSTRUCTIVE PULMONARY DISEASE
     Dosage: DAILY
     Route: 055
  8. OXYBUTYNIN. [Concomitant]
     Active Substance: OXYBUTYNIN CHLORIDE
     Indication: BLADDER DISORDER
     Route: 065
  9. VITAMIN D3 [Concomitant]
     Active Substance: CHOLECALCIFEROL
     Route: 065
  10. LEVOBUTEROL-NEBULIZER [Concomitant]
     Indication: CHRONIC OBSTRUCTIVE PULMONARY DISEASE
     Dosage: TWO TIMES A DAY
     Route: 055
  11. LEVOBUTEROL-NEBULIZER [Concomitant]
     Indication: CHRONIC OBSTRUCTIVE PULMONARY DISEASE
     Dosage: TWO TIMES A DAY
     Route: 055

REACTIONS (10)
  - Renal disorder [Unknown]
  - Pollakiuria [Unknown]
  - Weight decreased [Unknown]
  - Dysuria [Unknown]
  - Intentional device misuse [Unknown]
  - Drug dose omission [Unknown]
  - Circumstance or information capable of leading to medication error [Unknown]
  - Bladder disorder [Unknown]
  - Dyspnoea exertional [Unknown]
  - Device malfunction [Unknown]

NARRATIVE: CASE EVENT DATE: 201709
